FAERS Safety Report 6040688-5 (Version None)
Quarter: 2009Q1

REPORT INFORMATION
  Report Type: 
  Country: None (occurrence: None)
  Receive Date: 20090116
  Receipt Date: 20080506
  Transmission Date: 20090719
  Serious: No
  Sender: FDA-Public Use
  Company Number: US-BRISTOL-MYERS SQUIBB COMPANY-14177778

PATIENT
  Age: 79 Year
  Sex: Male

DRUGS (4)
  1. ABILIFY [Suspect]
     Indication: DEPRESSION
  2. NORTRIPTYLINE HCL [Suspect]
  3. SEROQUEL [Suspect]
  4. ZYPREXA [Suspect]

REACTIONS (2)
  - DIZZINESS [None]
  - DYSSTASIA [None]
